FAERS Safety Report 4477550-5 (Version None)
Quarter: 2004Q4

REPORT INFORMATION
  Report Type: 
  Country: None (occurrence: None)
  Receive Date: 20041018
  Receipt Date: 20041008
  Transmission Date: 20050328
  Serious: Yes (Other)
  Sender: FDA-Public Use
  Company Number: US-AMGEN-US095070

PATIENT

DRUGS (4)
  1. EPOGEN [Suspect]
     Indication: ANAEMIA OF MALIGNANT DISEASE
     Route: 058
     Dates: start: 20040518, end: 20040715
  2. ALLOPURINOL [Concomitant]
     Dates: start: 20021106, end: 20021216
  3. RITUXIMAB [Concomitant]
     Dates: start: 20040621, end: 20040718
  4. BLOOD CELLS, PACKED HUMAN [Concomitant]

REACTIONS (3)
  - APLASIA PURE RED CELL [None]
  - BLOOD ERYTHROPOIETIN INCREASED [None]
  - THERAPEUTIC RESPONSE DECREASED [None]
